FAERS Safety Report 7795665-0 (Version None)
Quarter: 2011Q4

REPORT INFORMATION
  Report Type: 
  Country: None (occurrence: None)
  Receive Date: 20111004
  Receipt Date: 20110928
  Transmission Date: 20120403
  Serious: Yes (Other)
  Sender: FDA-Public Use
  Company Number: JP-GLAXOSMITHKLINE-B0751647A

PATIENT
  Age: 21 Year
  Sex: Female

DRUGS (2)
  1. BISOLVON [Concomitant]
     Indication: ASTHMA
     Route: 055
  2. VENTOLIN [Suspect]
     Indication: ASTHMA
     Dosage: .5ML PER DAY
     Route: 055
     Dates: start: 20110926, end: 20110926

REACTIONS (1)
  - ANAPHYLACTIC REACTION [None]
